FAERS Safety Report 16707797 (Version 2)
Quarter: 2019Q3

REPORT INFORMATION
  Report Type: Spontaneous
  Country: IT (occurrence: IT)
  Receive Date: 20190815
  Receipt Date: 20190904
  Transmission Date: 20191004
  Serious: No
  Sender: FDA-Public Use
  Company Number: IT-BAUSCH-BL-2019-022378

PATIENT
  Age: 56 Year
  Sex: Male

DRUGS (6)
  1. IMIQUIMOD. [Suspect]
     Active Substance: IMIQUIMOD
     Indication: QUEYRAT ERYTHROPLASIA
     Dosage: SECOND CYCLE; TAPERED DOSE; DOSE DECREASED
     Route: 061
  2. IMIQUIMOD. [Suspect]
     Active Substance: IMIQUIMOD
     Indication: PRODUCT USE IN UNAPPROVED INDICATION
  3. IMIQUIMOD. [Suspect]
     Active Substance: IMIQUIMOD
     Indication: PRODUCT USE IN UNAPPROVED INDICATION
  4. IMIQUIMOD. [Suspect]
     Active Substance: IMIQUIMOD
     Indication: QUEYRAT ERYTHROPLASIA
     Dosage: FOR TWO SUCCESSIVE WEEKS
     Route: 061
  5. IMIQUIMOD. [Suspect]
     Active Substance: IMIQUIMOD
     Indication: PENILE SQUAMOUS CELL CARCINOMA
     Dosage: FIRST CYCLE
     Route: 061
  6. IMIQUIMOD. [Suspect]
     Active Substance: IMIQUIMOD
     Indication: PENILE SQUAMOUS CELL CARCINOMA
     Dosage: FOLLOWED BY A 2-WEEK OFF-TREATMENT PERIOD; TAPERED DOWN
     Route: 061

REACTIONS (6)
  - Discomfort [Recovered/Resolved]
  - Product use in unapproved indication [Unknown]
  - Application site erythema [Recovered/Resolved]
  - Skin reaction [Recovered/Resolved]
  - Application site erosion [Recovered/Resolved]
  - Inflammation [Recovered/Resolved]
